FAERS Safety Report 4992310-4 (Version None)
Quarter: 2006Q2

REPORT INFORMATION
  Report Type: 
  Country: None (occurrence: None)
  Receive Date: 20060502
  Receipt Date: 20060421
  Transmission Date: 20061013
  Serious: Yes (Death)
  Sender: FDA-Public Use
  Company Number: R301576-PAP-USA

PATIENT
  Age: 72 Year
  Sex: Female
  Weight: 104.3 kg

DRUGS (1)
  1. ACIPHEX (RABAPRAZOLE) (RABEPRAZOLE SODIUM) [Suspect]
     Indication: GASTROOESOPHAGEAL REFLUX DISEASE
     Dosage: 20 MG, UNKNOWN, ORAL
     Route: 048
     Dates: start: 20060321

REACTIONS (1)
  - ROAD TRAFFIC ACCIDENT [None]
